FAERS Safety Report 13574265 (Version 1)
Quarter: 2017Q2

REPORT INFORMATION
  Report Type: Spontaneous
  Country: US (occurrence: US)
  Receive Date: 20170523
  Receipt Date: 20170523
  Transmission Date: 20170830
  Serious: No
  Sender: FDA-Public Use
  Company Number: US-KERYX BIOPHARMACEUTICALS, INC.-2017US002513

PATIENT

DRUGS (4)
  1. VENOFER [Concomitant]
     Active Substance: IRON SUCROSE
     Indication: PRODUCT USED FOR UNKNOWN INDICATION
     Dosage: 100 MG, 3 TIMES/WK
     Route: 042
     Dates: start: 20161125, end: 20161216
  2. AURYXIA [Suspect]
     Active Substance: TETRAFERRIC TRICITRATE DECAHYDRATE
     Indication: PRODUCT USED FOR UNKNOWN INDICATION
     Dosage: UNK
     Dates: start: 201612
  3. EPO                                /00909301/ [Concomitant]
     Active Substance: ERYTHROPOIETIN
     Indication: PRODUCT USED FOR UNKNOWN INDICATION
     Dosage: 4800 UNIT, 3 TIMES/WK
     Dates: start: 20161226, end: 20170117
  4. EPO                                /00909301/ [Concomitant]
     Active Substance: ERYTHROPOIETIN
     Dosage: 6000 UNIT, 3 TIMES/WK
     Dates: start: 20170118

REACTIONS (2)
  - Transferrin saturation increased [Unknown]
  - Serum ferritin increased [Unknown]

NARRATIVE: CASE EVENT DATE: 20161224
